FAERS Safety Report 20483209 (Version 1)
Quarter: 2022Q1

REPORT INFORMATION
  Report Type: Spontaneous
  Country: PT (occurrence: PT)
  Receive Date: 20220217
  Receipt Date: 20220217
  Transmission Date: 20220423
  Serious: Yes (Hospitalization, Other)
  Sender: FDA-Public Use
  Company Number: PT-KERNPHARMA-20220187

PATIENT
  Age: 2 Year
  Sex: Female

DRUGS (2)
  1. AMOXICILLIN\CLAVULANIC ACID [Suspect]
     Active Substance: AMOXICILLIN\CLAVULANIC ACID
     Indication: Otorrhoea
     Dosage: UNK
     Route: 048
  2. OFLOXACIN [Suspect]
     Active Substance: OFLOXACIN
     Indication: Otorrhoea
     Dosage: UNK
     Route: 061

REACTIONS (3)
  - Drug ineffective [Recovered/Resolved]
  - Pathogen resistance [Unknown]
  - Mastoidectomy [Unknown]
